FAERS Safety Report 6479445-4 (Version None)
Quarter: 2009Q4

REPORT INFORMATION
  Report Type: 
  Country: None (occurrence: None)
  Receive Date: 20091207
  Receipt Date: 20090227
  Transmission Date: 20100525
  Serious: No
  Sender: FDA-Public Use
  Company Number: US-AMGEN-KDL336139

PATIENT
  Sex: Male

DRUGS (2)
  1. ENBREL [Suspect]
     Indication: ANKYLOSING SPONDYLITIS
     Route: 058
     Dates: start: 20070325
  2. METHOTREXATE [Concomitant]

REACTIONS (8)
  - BACK PAIN [None]
  - CHEST PAIN [None]
  - FAT TISSUE INCREASED [None]
  - FATIGUE [None]
  - MUSCULAR WEAKNESS [None]
  - MUSCULOSKELETAL PAIN [None]
  - TENDERNESS [None]
  - VISION BLURRED [None]
